FAERS Safety Report 4700333-5 (Version None)
Quarter: 2005Q2

REPORT INFORMATION
  Report Type: 
  Country: None (occurrence: None)
  Receive Date: 20050627
  Receipt Date: 20050322
  Transmission Date: 20051028
  Serious: Yes (Other)
  Sender: FDA-Public Use
  Company Number: US-MERCK-0503USA04211

PATIENT
  Age: 49 Year
  Sex: Female
  Weight: 102 kg

DRUGS (18)
  1. VIOXX [Suspect]
     Indication: PAIN
     Route: 048
     Dates: start: 20020212, end: 20040301
  2. VIOXX [Suspect]
     Indication: RHEUMATOID ARTHRITIS
     Route: 048
     Dates: start: 20020212, end: 20040301
  3. VIOXX [Suspect]
     Route: 048
     Dates: start: 20020212, end: 20040301
  4. VIOXX [Suspect]
     Route: 048
     Dates: start: 20020212, end: 20040301
  5. CIMETIDINE [Concomitant]
     Indication: PAIN
     Route: 065
  6. CALCIUM CARBONATE [Concomitant]
     Indication: MENOPAUSE
     Route: 065
  7. PREMARIN [Concomitant]
     Indication: MENOPAUSE
     Route: 065
  8. HYDRODIURIL [Concomitant]
     Indication: HYPERTENSION
     Route: 065
     Dates: start: 19950101
  9. NORVASC [Concomitant]
     Indication: HYPERTENSION
     Route: 065
     Dates: start: 20010112
  10. NORVASC [Concomitant]
     Indication: MIGRAINE
     Route: 065
     Dates: start: 20010112
  11. PRILOSEC [Concomitant]
     Route: 065
  12. ULTRAM [Concomitant]
     Indication: PAIN
     Route: 065
     Dates: start: 19890101
  13. NITROFURANTOIN [Concomitant]
     Indication: CARDIAC DISORDER
     Route: 065
  14. PROCHLORPERAZINE [Concomitant]
     Indication: HYPERHIDROSIS
     Route: 065
  15. LIPITOR [Concomitant]
     Indication: BLOOD CHOLESTEROL INCREASED
     Route: 065
  16. PERPHENAZINE [Concomitant]
     Indication: PAIN
     Route: 065
  17. FERROUS SULFATE [Concomitant]
     Indication: IRON DEFICIENCY
     Route: 065
  18. ASPIRIN [Concomitant]
     Indication: CEREBROVASCULAR ACCIDENT PROPHYLAXIS
     Route: 065
     Dates: start: 20030701

REACTIONS (1)
  - CEREBROVASCULAR ACCIDENT [None]
